FAERS Safety Report 5246592-4 (Version None)
Quarter: 2007Q1

REPORT INFORMATION
  Report Type: 
  Country: None (occurrence: None)
  Receive Date: 20061201
  Receipt Date: 20060814
  Transmission Date: 20070707
  Serious: No
  Sender: FDA-Public Use
  Company Number: 2006PV019406

PATIENT
  Age: 76 Year
  Sex: Female
  Weight: 85.2762 kg

DRUGS (1)
  1. BYETTA [Suspect]
     Dosage: 5 MCG BID SC
     Route: 058
     Dates: start: 20050601

REACTIONS (1)
  - WEIGHT DECREASED [None]
